FAERS Safety Report 8434516-8 (Version None)
Quarter: 2012Q2

REPORT INFORMATION
  Report Type: 
  Country: None (occurrence: None)
  Receive Date: 20120614
  Receipt Date: 20120608
  Transmission Date: 20120825
  Serious: No
  Sender: FDA-Public Use
  Company Number: US-BIOGENIDEC-2012BI020039

PATIENT
  Sex: Female

DRUGS (2)
  1. TYSABRI [Suspect]
     Indication: MULTIPLE SCLEROSIS
     Route: 042
     Dates: start: 20090101
  2. TYSABRI [Suspect]
     Route: 042
     Dates: start: 20120517

REACTIONS (3)
  - WHITE BLOOD CELL COUNT INCREASED [None]
  - LEUKOCYTOSIS [None]
  - LYMPHOCYTE COUNT INCREASED [None]
